FAERS Safety Report 6431434-1 (Version None)
Quarter: 2009Q4

REPORT INFORMATION
  Report Type: 
  Country: None (occurrence: None)
  Receive Date: 20091105
  Receipt Date: 20091105
  Transmission Date: 20100525
  Serious: Yes (Disabling)
  Sender: FDA-Public Use
  Company Number: None

PATIENT
  Age: 60 Year
  Sex: Female
  Weight: 68.0396 kg

DRUGS (2)
  1. FOSAMAX [Suspect]
     Indication: BONE DENSITY DECREASED
     Dosage: 1 PILL ONCE A WK MOUTH
     Route: 048
     Dates: start: 19800101
  2. FOSAMAX [Suspect]
     Indication: MENOPAUSE
     Dosage: 1 PILL ONCE A WK MOUTH
     Route: 048
     Dates: start: 19800101

REACTIONS (3)
  - BONE DENSITY DECREASED [None]
  - HIP ARTHROPLASTY [None]
  - TOOTH EXTRACTION [None]
